FAERS Safety Report 9603825 (Version 4)
Quarter: 2014Q1

REPORT INFORMATION
  Report Type: Report from Study
  Country: US (occurrence: US)
  Receive Date: 20131008
  Receipt Date: 20140303
  Transmission Date: 20141002
  Serious: Yes (Hospitalization, Other)
  Sender: FDA-Public Use
  Company Number: US-ROCHE-1213365

PATIENT
  Age: 56 Year
  Sex: Female
  Weight: 85.35 kg

DRUGS (10)
  1. AVASTIN [Suspect]
     Indication: COLORECTAL CANCER METASTATIC
     Route: 042
     Dates: start: 20110101
  2. 5-FU [Concomitant]
     Indication: COLORECTAL CANCER METASTATIC
     Route: 065
     Dates: start: 20110101
  3. LEUCOVORIN [Concomitant]
     Indication: COLORECTAL CANCER METASTATIC
     Route: 065
     Dates: start: 20110101
  4. ATENOLOL [Concomitant]
     Indication: HEART RATE INCREASED
     Route: 048
  5. COUMADIN [Concomitant]
     Indication: ANTICOAGULANT THERAPY
     Route: 048
  6. BUMEX [Concomitant]
     Indication: ANTICOAGULANT THERAPY
     Route: 048
  7. SYMAX [Concomitant]
     Indication: ANTICOAGULANT THERAPY
     Route: 048
  8. ELAVIL (UNITED STATES) [Concomitant]
     Indication: ANTICOAGULANT THERAPY
     Dosage: NIGHTLY
     Route: 065
  9. SINGULAIR [Concomitant]
     Indication: ANTICOAGULANT THERAPY
     Route: 065
  10. ASA [Concomitant]
     Indication: ANTICOAGULANT THERAPY
     Route: 065

REACTIONS (13)
  - Intestinal obstruction [Unknown]
  - Upper limb fracture [Unknown]
  - Tooth extraction [Not Recovered/Not Resolved]
  - Tooth disorder [Recovered/Resolved]
  - Nerve compression [Not Recovered/Not Resolved]
  - Weight decreased [Not Recovered/Not Resolved]
  - Foot fracture [Unknown]
  - Humerus fracture [Not Recovered/Not Resolved]
  - Dry skin [Not Recovered/Not Resolved]
  - Liver disorder [Unknown]
  - Pulmonary mass [Unknown]
  - Neuropathy peripheral [Unknown]
  - Skin exfoliation [Not Recovered/Not Resolved]
